FAERS Safety Report 12113582 (Version 1)
Quarter: 2016Q1

REPORT INFORMATION
  Report Type: Spontaneous
  Country: US (occurrence: None)
  Receive Date: 20160224
  Receipt Date: 20160224
  Transmission Date: 20160526
  Serious: Yes (Other)
  Sender: FDA-Public Use
  Company Number: None

PATIENT
  Age: 67 Year
  Sex: Male
  Weight: 83 kg

DRUGS (1)
  1. HEPARIN 1000 UNITS/ML, 30 ML FRESENIUS KABF [Suspect]
     Active Substance: HEPARIN SODIUM
     Dosage: LOT # 6010204?EXPIRATION DATE 8/2017

REACTIONS (2)
  - Coagulation time prolonged [None]
  - Product substitution issue [None]

NARRATIVE: CASE EVENT DATE: 20160129
